FAERS Safety Report 6344309-3 (Version None)
Quarter: 2009Q3

REPORT INFORMATION
  Report Type: 
  Country: None (occurrence: None)
  Receive Date: 20090908
  Receipt Date: 20090824
  Transmission Date: 20100115
  Serious: Yes (Other)
  Sender: FDA-Public Use
  Company Number: CN-ROCHE-653843

PATIENT

DRUGS (2)
  1. EPOETIN BETA [Suspect]
     Route: 065
  2. EPOETIN ALPHA [Concomitant]
     Dosage: DOSE: 5000-7500 U PER WEEK
     Route: 058

REACTIONS (1)
  - DRUG INEFFECTIVE [None]
